FAERS Safety Report 10206340 (Version 11)
Quarter: 2017Q2

REPORT INFORMATION
  Report Type: Report from Study
  Country: JP (occurrence: JP)
  Receive Date: 20140530
  Receipt Date: 20170404
  Transmission Date: 20170829
  Serious: Yes (Death)
  Sender: FDA-Public Use
  Company Number: PHHY2014JP065808

PATIENT
  Age: 49 Year
  Sex: Male
  Weight: 55 kg

DRUGS (58)
  1. SANDIMMUN [Concomitant]
     Active Substance: CYCLOSPORINE
     Dosage: 9 MG, UNK
     Route: 041
     Dates: start: 20120705, end: 20120706
  2. PROGRAF [Concomitant]
     Active Substance: TACROLIMUS\TACROLIMUS ANHYDROUS
     Dosage: 16 MG, UNK
     Route: 048
     Dates: start: 20111001, end: 20111004
  3. PROGRAF [Concomitant]
     Active Substance: TACROLIMUS\TACROLIMUS ANHYDROUS
     Dosage: 8 MG, UNK
     Route: 048
     Dates: start: 20120528, end: 20120619
  4. LIPITOR [Concomitant]
     Active Substance: ATORVASTATIN CALCIUM
     Dosage: 5 MG, UNK
     Route: 048
     Dates: start: 20120827, end: 20130318
  5. LIPITOR [Concomitant]
     Active Substance: ATORVASTATIN CALCIUM
     Dosage: 10 MG, UNK
     Route: 048
     Dates: start: 20130610
  6. PREDONINE [Concomitant]
     Active Substance: PREDNISOLONE
     Dosage: 10 MG, UNK
     Route: 042
     Dates: start: 20120628, end: 20120829
  7. MYCOPHENOLATE MOFETIL. [Concomitant]
     Active Substance: MYCOPHENOLATE MOFETIL
     Dosage: 1500 MG, UNK
     Route: 048
     Dates: start: 20130304, end: 20130325
  8. CERTICAN [Suspect]
     Active Substance: EVEROLIMUS
     Dosage: 2 MG, QD
     Route: 048
     Dates: start: 20120607, end: 20120619
  9. CERTICAN [Suspect]
     Active Substance: EVEROLIMUS
     Dosage: 1.75 MG, QD
     Route: 048
     Dates: start: 20120825, end: 20120920
  10. NEORAL [Concomitant]
     Active Substance: CYCLOSPORINE
     Dosage: 50 MG, UNK
     Route: 048
     Dates: start: 20130718
  11. SANDIMMUN [Concomitant]
     Active Substance: CYCLOSPORINE
     Dosage: 3 MG, UNK
     Route: 041
     Dates: start: 20120806, end: 20120906
  12. PROGRAF [Concomitant]
     Active Substance: TACROLIMUS\TACROLIMUS ANHYDROUS
     Dosage: 18 MG, UNK
     Route: 048
     Dates: start: 20111005, end: 20111031
  13. PROGRAF [Concomitant]
     Active Substance: TACROLIMUS\TACROLIMUS ANHYDROUS
     Dosage: 6 MG, UNK
     Route: 048
     Dates: start: 20120518, end: 20120527
  14. PREDONINE [Concomitant]
     Active Substance: PREDNISOLONE
     Dosage: 2.5 MG, UNK
     Route: 048
     Dates: start: 20120521, end: 20120619
  15. CERTICAN [Suspect]
     Active Substance: EVEROLIMUS
     Indication: HEART TRANSPLANT
     Dosage: 1.5 MG, QD
     Route: 048
     Dates: start: 20111001, end: 20111009
  16. CERTICAN [Suspect]
     Active Substance: EVEROLIMUS
     Dosage: 0.5 MG, QD
     Route: 048
     Dates: start: 20130517
  17. SANDIMMUN [Concomitant]
     Active Substance: CYCLOSPORINE
     Dosage: 6 MG, UNK
     Route: 041
     Dates: start: 20120706, end: 20120805
  18. CERTICAN [Suspect]
     Active Substance: EVEROLIMUS
     Indication: IMMUNOSUPPRESSION
     Dosage: 2 MG, QD
     Route: 048
     Dates: start: 20111010, end: 20120405
  19. CERTICAN [Suspect]
     Active Substance: EVEROLIMUS
     Dosage: 2.75 MG, QD
     Route: 048
     Dates: start: 20120406, end: 20120520
  20. CERTICAN [Suspect]
     Active Substance: EVEROLIMUS
     Dosage: 1.5 MG, QD
     Route: 048
     Dates: start: 20130508, end: 20130513
  21. CERTICAN [Suspect]
     Active Substance: EVEROLIMUS
     Dosage: 1 MG, QD
     Route: 048
     Dates: start: 20130514, end: 20130516
  22. NEORAL [Concomitant]
     Active Substance: CYCLOSPORINE
     Dosage: 50 MG, UNK
     Route: 048
     Dates: start: 20121015, end: 20121111
  23. NEORAL [Concomitant]
     Active Substance: CYCLOSPORINE
     Dosage: 20 MG, UNK
     Route: 048
     Dates: start: 20130511, end: 20130717
  24. PROGRAF [Concomitant]
     Active Substance: TACROLIMUS\TACROLIMUS ANHYDROUS
     Dosage: 12 MG, UNK
     Route: 048
     Dates: start: 20120514, end: 20120517
  25. RENIVACE [Concomitant]
     Active Substance: ENALAPRIL
     Dosage: 10 MG, UNK
     Route: 048
     Dates: start: 20120210, end: 20120619
  26. PREDONINE [Concomitant]
     Active Substance: PREDNISOLONE
     Indication: HEART TRANSPLANT
     Dosage: 5 MG, UNK
     Route: 048
     Dates: start: 20111001, end: 20120520
  27. PREDONINE [Concomitant]
     Active Substance: PREDNISOLONE
     Dosage: 7.5 MG, UNK
     Route: 048
     Dates: start: 20121018, end: 20121216
  28. MYCOPHENOLATE MOFETIL. [Concomitant]
     Active Substance: MYCOPHENOLATE MOFETIL
     Indication: HEART TRANSPLANT
     Dosage: 1000 MG, UNK
     Route: 048
     Dates: start: 20121121, end: 20121203
  29. MYCOPHENOLATE MOFETIL. [Concomitant]
     Active Substance: MYCOPHENOLATE MOFETIL
     Dosage: 500 MG, UNK
     Route: 048
     Dates: start: 20121203, end: 20121210
  30. MYCOPHENOLATE MOFETIL. [Concomitant]
     Active Substance: MYCOPHENOLATE MOFETIL
     Dosage: 2000 MG, UNK
     Route: 048
     Dates: start: 20130326, end: 20130512
  31. MYCOPHENOLATE MOFETIL. [Concomitant]
     Active Substance: MYCOPHENOLATE MOFETIL
     Dosage: 1000 MG, UNK
     Route: 048
     Dates: start: 20130513, end: 20130517
  32. CERTICAN [Suspect]
     Active Substance: EVEROLIMUS
     Dosage: 1.25 MG, QD
     Route: 048
     Dates: start: 20120803, end: 20120810
  33. NEORAL [Concomitant]
     Active Substance: CYCLOSPORINE
     Indication: HEART TRANSPLANT
     Dosage: 200 MG, UNK
     Route: 048
     Dates: start: 20120907, end: 20120915
  34. NEORAL [Concomitant]
     Active Substance: CYCLOSPORINE
     Dosage: 50 MG, UNK
     Route: 048
     Dates: start: 20120916, end: 20120926
  35. NEORAL [Concomitant]
     Active Substance: CYCLOSPORINE
     Dosage: 50 MG, UNK
     Route: 048
     Dates: start: 20121217, end: 20130211
  36. NEORAL [Concomitant]
     Active Substance: CYCLOSPORINE
     Dosage: 45 MG, UNK
     Route: 048
     Dates: start: 20130420, end: 20130424
  37. PROGRAF [Concomitant]
     Active Substance: TACROLIMUS\TACROLIMUS ANHYDROUS
     Dosage: 16 MG, UNK
     Route: 048
     Dates: start: 20111101, end: 20111207
  38. RENIVACE [Concomitant]
     Active Substance: ENALAPRIL
     Indication: HYPERTENSION
     Dosage: 2.5 MG, UNK
     Route: 048
     Dates: start: 20110705, end: 20120209
  39. CERTICAN [Suspect]
     Active Substance: EVEROLIMUS
     Dosage: 2.5 MG, QD
     Route: 048
     Dates: start: 20120521, end: 20120606
  40. CERTICAN [Suspect]
     Active Substance: EVEROLIMUS
     Dosage: 1.5 MG, QD
     Route: 048
     Dates: start: 20120811, end: 20120824
  41. CERTICAN [Suspect]
     Active Substance: EVEROLIMUS
     Dosage: 0.5 MG, QD
     Route: 048
     Dates: start: 20121018, end: 20121120
  42. NEORAL [Concomitant]
     Active Substance: CYCLOSPORINE
     Dosage: 40 MG, UNK
     Route: 048
     Dates: start: 20120927, end: 20121014
  43. NEORAL [Concomitant]
     Active Substance: CYCLOSPORINE
     Dosage: 60 MG, UNK
     Route: 048
     Dates: start: 20130212, end: 20130419
  44. SANDIMMUN [Concomitant]
     Active Substance: CYCLOSPORINE
     Dosage: 12 MG, UNK
     Route: 041
     Dates: start: 20120704, end: 20120705
  45. LIPITOR [Concomitant]
     Active Substance: ATORVASTATIN CALCIUM
     Indication: PROPHYLAXIS
     Dosage: 5 MG, UNK
     Route: 048
     Dates: start: 20110801, end: 20120619
  46. PREDONINE [Concomitant]
     Active Substance: PREDNISOLONE
     Dosage: 10 MG, UNK
     Route: 048
     Dates: start: 20120830, end: 20121017
  47. NEORAL [Concomitant]
     Active Substance: CYCLOSPORINE
     Dosage: 40 MG, UNK
     Route: 048
     Dates: start: 20121112, end: 20121118
  48. NEORAL [Concomitant]
     Active Substance: CYCLOSPORINE
     Dosage: 50 MG, UNK
     Route: 048
     Dates: start: 20130425, end: 20130510
  49. SANDIMMUN [Concomitant]
     Active Substance: CYCLOSPORINE
     Indication: HEART TRANSPLANT
     Dosage: 24 MG, UNK
     Route: 041
     Dates: start: 20120703, end: 20120704
  50. PROGRAF [Concomitant]
     Active Substance: TACROLIMUS\TACROLIMUS ANHYDROUS
     Dosage: 15 MG, UNK
     Route: 048
     Dates: start: 20111208, end: 20120513
  51. CERTICAN [Suspect]
     Active Substance: EVEROLIMUS
     Dosage: 1 MG, QD
     Route: 048
     Dates: start: 20120727, end: 20120802
  52. NEORAL [Concomitant]
     Active Substance: CYCLOSPORINE
     Dosage: 80 MG, UNK
     Route: 048
     Dates: start: 20121119, end: 20121205
  53. NEORAL [Concomitant]
     Active Substance: CYCLOSPORINE
     Dosage: 60 MG, UNK
     Route: 048
     Dates: start: 20121206, end: 20121216
  54. PROGRAF [Concomitant]
     Active Substance: TACROLIMUS\TACROLIMUS ANHYDROUS
     Indication: HEART TRANSPLANT
     Dosage: 19 MG, UNK
     Route: 048
     Dates: start: 20110830, end: 20110930
  55. PREDONINE [Concomitant]
     Active Substance: PREDNISOLONE
     Dosage: 5 MG, UNK
     Route: 048
     Dates: start: 20121217
  56. SIMULECT [Concomitant]
     Active Substance: BASILIXIMAB
     Indication: HEART TRANSPLANT
     Dosage: UNK
     Route: 065
     Dates: start: 20120619
  57. CERTICAN [Suspect]
     Active Substance: EVEROLIMUS
     Dosage: 1 MG, QD
     Route: 048
     Dates: start: 20120921, end: 20121017
  58. CERTICAN [Suspect]
     Active Substance: EVEROLIMUS
     Dosage: 0.5 MG, QD
     Route: 048
     Dates: start: 20121130, end: 20130307

REACTIONS (4)
  - Glycosylated haemoglobin increased [Fatal]
  - Arrhythmia [Fatal]
  - Blood alkaline phosphatase increased [Unknown]
  - Diabetes mellitus [Fatal]

NARRATIVE: CASE EVENT DATE: 20111031
